FAERS Safety Report 5917227-X (Version None)
Quarter: 2008Q4

REPORT INFORMATION
  Report Type: 
  Country: None (occurrence: None)
  Receive Date: 20081014
  Receipt Date: 20081006
  Transmission Date: 20090506
  Serious: Yes (Hospitalization)
  Sender: FDA-Public Use
  Company Number: NL-AMGEN-UK304561

PATIENT
  Sex: Male
  Weight: 101 kg

DRUGS (6)
  1. NEULASTA [Suspect]
     Indication: CHEMOTHERAPY
     Route: 058
     Dates: start: 20080729
  2. IFOSFAMIDE [Suspect]
     Route: 042
     Dates: start: 20080729
  3. SUNITINIB MALATE [Suspect]
     Route: 048
     Dates: start: 20080729
  4. TAMSULOSIN HCL [Concomitant]
     Route: 048
  5. METOCLOPRAMIDE [Concomitant]
     Route: 048
     Dates: start: 20080801
  6. LORAZEPAM [Concomitant]
     Route: 048
     Dates: start: 20080731

REACTIONS (1)
  - FEBRILE NEUTROPENIA [None]
